FAERS Safety Report 14579278 (Version 4)
Quarter: 2018Q2

REPORT INFORMATION
  Report Type: Spontaneous
  Country: JP (occurrence: JP)
  Receive Date: 20180227
  Receipt Date: 20180625
  Transmission Date: 20180711
  Serious: Yes (Hospitalization, Other)
  Sender: FDA-Public Use
  Company Number: JP-PFIZER INC-2018080850

PATIENT
  Age: 78 Year
  Sex: Female
  Weight: 50 kg

DRUGS (6)
  1. RHEUMATREX [Suspect]
     Active Substance: METHOTREXATE SODIUM
     Indication: RHEUMATOID ARTHRITIS
     Dosage: 10 MG, WEEKLY
     Route: 048
     Dates: end: 20180222
  2. CELECOX [Concomitant]
     Active Substance: CELECOXIB
     Dosage: 100 MG, AS NEEDED
     Route: 048
  3. ICOSAPENT ETHYL [Concomitant]
     Active Substance: ICOSAPENT ETHYL
     Dosage: UNK, 2X/DAY
     Route: 048
  4. REBAMIPIDE [Concomitant]
     Active Substance: REBAMIPIDE
     Dosage: 100 MG, AS NEEDED
     Route: 048
  5. XELJANZ [Suspect]
     Active Substance: TOFACITINIB CITRATE
     Indication: RHEUMATOID ARTHRITIS
     Dosage: 5 MG, 2X/DAY
     Route: 048
     Dates: end: 20180222
  6. FORTEO [Concomitant]
     Active Substance: TERIPARATIDE
     Dosage: UNK, 1X/DAY
     Route: 058
     Dates: end: 20180222

REACTIONS (2)
  - Urinary tract infection [Recovered/Resolved]
  - Herpes zoster meningitis [Recovering/Resolving]

NARRATIVE: CASE EVENT DATE: 20180222
